FAERS Safety Report 9496673 (Version 3)
Quarter: 2014Q1

REPORT INFORMATION
  Report Type: Spontaneous
  Country: US (occurrence: US)
  Receive Date: 20130904
  Receipt Date: 20140307
  Transmission Date: 20141002
  Serious: Yes (Hospitalization, Other)
  Sender: FDA-Public Use
  Company Number: US-US-EMD SERONO, INC.-235699J08USA

PATIENT
  Age: 51 Year
  Sex: Female

DRUGS (9)
  1. REBIF [Suspect]
     Indication: MULTIPLE SCLEROSIS
     Route: 058
     Dates: start: 20060705
  2. PREDNISONE [Concomitant]
     Indication: HYPERSENSITIVITY
     Dates: start: 200705
  3. PREDNISONE [Concomitant]
  4. VISTARIL                           /00058403/ [Concomitant]
     Indication: HYPERSENSITIVITY
     Dates: start: 200705
  5. LEXAPRO [Concomitant]
     Indication: DEPRESSION
     Dates: start: 200606
  6. KLONOPIN [Concomitant]
     Indication: ANXIETY
     Dates: start: 200606
  7. KLONOPIN [Concomitant]
     Dates: start: 200606
  8. ATENOLOL [Concomitant]
     Indication: PALPITATIONS
     Dates: start: 1997
  9. IBUPROFEN [Concomitant]
     Indication: PREMEDICATION
     Dates: start: 200607

REACTIONS (7)
  - Hypersensitivity [Recovered/Resolved]
  - Multiple sclerosis relapse [Recovered/Resolved]
  - Dry eye [Unknown]
  - Crying [Not Recovered/Not Resolved]
  - Abdominal pain [Unknown]
  - Fatigue [Not Recovered/Not Resolved]
  - Depressed mood [Not Recovered/Not Resolved]
